FAERS Safety Report 6480415-0 (Version None)
Quarter: 2009Q4

REPORT INFORMATION
  Report Type: 
  Country: None (occurrence: None)
  Receive Date: 20091208
  Receipt Date: 20091203
  Transmission Date: 20100525
  Serious: Yes (Death)
  Sender: FDA-Public Use
  Company Number: CHPA2009GR22955

PATIENT

DRUGS (1)
  1. COMTREX UNKNOWN (NCH) [Suspect]
     Dosage: UNK, UNK

REACTIONS (1)
  - DEATH [None]
